FAERS Safety Report 4369831-0 (Version None)
Quarter: 2004Q2

REPORT INFORMATION
  Report Type: 
  Country: None (occurrence: None)
  Receive Date: 20040527
  Receipt Date: 20040517
  Transmission Date: 20050107
  Serious: Yes (Hospitalization, Other)
  Sender: FDA-Public Use
  Company Number: 2004031341

PATIENT
  Age: 50 Year
  Sex: Male

DRUGS (4)
  1. LIPITOR [Suspect]
     Indication: ILL-DEFINED DISORDER
     Dosage: 10 MG (1 IN 1 D), ORAL
     Route: 048
     Dates: start: 20030701, end: 20040401
  2. ZOLPIDEM TARTRATE [Suspect]
     Indication: ILL-DEFINED DISORDER
     Dosage: ORAL
     Route: 048
     Dates: start: 20040201, end: 20040401
  3. MOSAPRIDE CITRATE (MOSAPRIDE CITRATE) [Suspect]
     Indication: ILL-DEFINED DISORDER
     Dosage: ORAL
     Route: 048
     Dates: start: 20030701, end: 20040401
  4. FLUNITRAZEPAM (FLUNITRAZEPAM) [Suspect]
     Indication: ILL-DEFINED DISORDER
     Dosage: ORAL
     Route: 048
     Dates: start: 20030701, end: 20040401

REACTIONS (6)
  - DELIRIUM [None]
  - DIALYSIS [None]
  - HEPATIC FAILURE [None]
  - HYPOGLYCAEMIA [None]
  - OVERDOSE [None]
  - RENAL IMPAIRMENT [None]
